FAERS Safety Report 11274960 (Version 1)
Quarter: 2015Q3

REPORT INFORMATION
  Report Type: Report from Study
  Country: GB (occurrence: GB)
  Receive Date: 20150716
  Receipt Date: 20150716
  Transmission Date: 20151125
  Serious: Yes (Other)
  Sender: FDA-Public Use
  Company Number: GB-PFIZER INC-2015229063

PATIENT
  Age: 23 Year
  Sex: Female

DRUGS (21)
  1. PHENOBARBITONE /00023201/ [Concomitant]
     Indication: COMPLEX PARTIAL SEIZURES
     Dosage: UNK
  2. PHENOBARBITONE /00023201/ [Concomitant]
     Indication: MYOCLONUS
  3. CARBAMAZEPINE. [Concomitant]
     Active Substance: CARBAMAZEPINE
     Indication: MYOCLONUS
  4. SODIUM VALPROATE [Concomitant]
     Active Substance: VALPROATE SODIUM
     Indication: COMPLEX PARTIAL SEIZURES
     Dosage: UNK
  5. CLONAZEPAM. [Concomitant]
     Active Substance: CLONAZEPAM
     Indication: COMPLEX PARTIAL SEIZURES
     Dosage: UNK
  6. LAMOTRIGINE. [Concomitant]
     Active Substance: LAMOTRIGINE
     Indication: MYOCLONUS
  7. VIGABATRINE [Concomitant]
     Active Substance: VIGABATRIN
     Indication: COMPLEX PARTIAL SEIZURES
     Dosage: UNK
  8. VIGABATRINE [Concomitant]
     Active Substance: VIGABATRIN
     Indication: MYOCLONUS
  9. SODIUM VALPROATE [Concomitant]
     Active Substance: VALPROATE SODIUM
     Indication: SEIZURE
  10. SODIUM VALPROATE [Concomitant]
     Active Substance: VALPROATE SODIUM
     Indication: MYOCLONUS
  11. PHENYTOIN. [Suspect]
     Active Substance: PHENYTOIN
     Indication: COMPLEX PARTIAL SEIZURES
     Dosage: UNK
  12. PHENYTOIN. [Suspect]
     Active Substance: PHENYTOIN
     Indication: SEIZURE
  13. LAMOTRIGINE. [Concomitant]
     Active Substance: LAMOTRIGINE
     Indication: SEIZURE
  14. PHENOBARBITONE /00023201/ [Concomitant]
     Indication: SEIZURE
  15. CLONAZEPAM. [Concomitant]
     Active Substance: CLONAZEPAM
     Indication: MYOCLONUS
  16. VIGABATRINE [Concomitant]
     Active Substance: VIGABATRIN
     Indication: SEIZURE
  17. LAMOTRIGINE. [Concomitant]
     Active Substance: LAMOTRIGINE
     Indication: COMPLEX PARTIAL SEIZURES
     Dosage: UNK
  18. CARBAMAZEPINE. [Concomitant]
     Active Substance: CARBAMAZEPINE
     Indication: COMPLEX PARTIAL SEIZURES
     Dosage: UNK
  19. PHENYTOIN. [Suspect]
     Active Substance: PHENYTOIN
     Indication: MYOCLONUS
  20. CLONAZEPAM. [Concomitant]
     Active Substance: CLONAZEPAM
     Indication: SEIZURE
  21. CARBAMAZEPINE. [Concomitant]
     Active Substance: CARBAMAZEPINE
     Indication: SEIZURE

REACTIONS (2)
  - Neurodegenerative disorder [Unknown]
  - Cerebral atrophy [Unknown]
